FAERS Safety Report 13193885 (Version 1)
Quarter: 2017Q1

REPORT INFORMATION
  Report Type: Spontaneous
  Country: US (occurrence: US)
  Receive Date: 20170207
  Receipt Date: 20170207
  Transmission Date: 20170428
  Serious: Yes (Hospitalization)
  Sender: FDA-Public Use
  Company Number: US-OTSUKA-2017_002253

PATIENT
  Sex: Male

DRUGS (5)
  1. NUEDEXTA [Suspect]
     Active Substance: DEXTROMETHORPHAN HYDROBROMIDE\QUINIDINE SULFATE
     Dosage: UNK
     Route: 065
     Dates: end: 201612
  2. ROPINIROL [Concomitant]
     Active Substance: ROPINIROLE
     Indication: MUSCLE DISORDER
  3. ROPINIROL [Concomitant]
     Active Substance: ROPINIROLE
     Indication: MUSCULOSKELETAL STIFFNESS
     Dosage: UNK
     Route: 065
  4. NUEDEXTA [Suspect]
     Active Substance: DEXTROMETHORPHAN HYDROBROMIDE\QUINIDINE SULFATE
     Indication: MULTIPLE SCLEROSIS
     Dosage: 1 DF, BID (1 CAPSULE TWICE DAILY)
     Route: 048
  5. BUPROPION. [Concomitant]
     Active Substance: BUPROPION
     Indication: PRODUCT USED FOR UNKNOWN INDICATION
     Dosage: UNK
     Route: 065

REACTIONS (7)
  - Nervousness [Unknown]
  - Anxiety [Not Recovered/Not Resolved]
  - Insurance issue [Unknown]
  - Affect lability [Not Recovered/Not Resolved]
  - Product use issue [Unknown]
  - Stress [Recovered/Resolved]
  - Therapy cessation [Unknown]

NARRATIVE: CASE EVENT DATE: 201508
